FAERS Safety Report 7213873-4 (Version None)
Quarter: 2011Q1

REPORT INFORMATION
  Report Type: 
  Country: None (occurrence: None)
  Receive Date: 20110106
  Receipt Date: 20101224
  Transmission Date: 20110831
  Serious: Yes (Life-Threatening)
  Sender: FDA-Public Use
  Company Number: JP-ELI_LILLY_AND_COMPANY-JP201012005359

PATIENT
  Age: 57 Year
  Sex: Male

DRUGS (2)
  1. GEMZAR [Suspect]
     Dosage: UNK, UNKNOWN
     Route: 042
     Dates: start: 20100901
  2. GEMZAR [Suspect]
     Indication: PANCREATIC CARCINOMA
     Dosage: 1800 MG, OTHER
     Route: 042
     Dates: start: 20100803

REACTIONS (4)
  - THROMBOTIC THROMBOCYTOPENIC PURPURA [None]
  - OEDEMA [None]
  - MALAISE [None]
  - BLOOD ALBUMIN DECREASED [None]
